FAERS Safety Report 23608654 (Version 3)
Quarter: 2024Q2

REPORT INFORMATION
  Report Type: Report from Study
  Country: CA (occurrence: CA)
  Receive Date: 20240308
  Receipt Date: 20240411
  Transmission Date: 20240716
  Serious: Yes (Other)
  Sender: FDA-Public Use
  Company Number: CA-CELLTRION INC.-2024CA000672

PATIENT

DRUGS (13)
  1. YUFLYMA [Suspect]
     Active Substance: ADALIMUMAB-AATY
     Indication: Colitis ulcerative
     Dosage: 40MG SUBCUTANEOUSLY EVERY WEEK
     Route: 058
     Dates: start: 20231213
  2. YUFLYMA [Suspect]
     Active Substance: ADALIMUMAB-AATY
     Dosage: 40MG SUBCUTANEOUSLY EVERY WEEK
     Route: 058
     Dates: start: 20240110
  3. YUFLYMA [Suspect]
     Active Substance: ADALIMUMAB-AATY
     Dosage: 40 MG SUBCUTANEOUSLY EVERY WEEK
     Route: 058
     Dates: start: 20240228
  4. YUFLYMA [Suspect]
     Active Substance: ADALIMUMAB-AATY
     Dosage: 40 MG, SUBCUTANEOUSLY, EVERY WEEK
     Route: 058
     Dates: start: 20240306
  5. HUMIRA [Suspect]
     Active Substance: ADALIMUMAB
     Indication: Product used for unknown indication
  6. BUPROPION [Concomitant]
     Active Substance: BUPROPION
     Indication: Libido decreased
     Dosage: 150 MG PER DAY BY MOUTH
     Route: 048
  7. RAMIPRIL [Concomitant]
     Active Substance: RAMIPRIL
     Dosage: 10MGS 1 PO QDAY
     Route: 048
  8. PANTOPRAZOLE [Concomitant]
     Active Substance: PANTOPRAZOLE
     Dosage: 40MG 1 PO QAM
     Route: 048
  9. APO SIMVASTATIN [Concomitant]
     Dosage: 100MG 1 PO QDAY
     Route: 048
  10. SIMVASTATIN [Concomitant]
     Active Substance: SIMVASTATIN
     Dosage: 5MG 1 PO QDAY
  11. APO SITAGLIPTIN MALATE [Concomitant]
     Dosage: 100 MG EVERY DAY
  12. JARDIANCE [Concomitant]
     Active Substance: EMPAGLIFLOZIN
  13. BILASTINE [Concomitant]
     Active Substance: BILASTINE
     Indication: Hypersensitivity
     Dosage: UNK, PRN

REACTIONS (3)
  - Colitis ulcerative [Not Recovered/Not Resolved]
  - Seizure [Not Recovered/Not Resolved]
  - Vulvovaginal mycotic infection [Unknown]

NARRATIVE: CASE EVENT DATE: 20240228
